FAERS Safety Report 8532567-6 (Version None)
Quarter: 2012Q3

REPORT INFORMATION
  Report Type: 
  Country: None (occurrence: None)
  Receive Date: 20120724
  Receipt Date: 20120719
  Transmission Date: 20120928
  Serious: No
  Sender: FDA-Public Use
  Company Number: US-PFIZER INC-2012174899

PATIENT
  Sex: Male
  Weight: 76.644 kg

DRUGS (3)
  1. SUTENT [Suspect]
     Indication: HEPATIC NEOPLASM
     Dosage: UNK
     Dates: start: 20120709
  2. LISINOPRIL [Concomitant]
     Indication: HYPERTENSION
     Dosage: 20 MG, DAILY EVERY NIGHT
  3. NIFEDIAC [Concomitant]
     Indication: HYPERTENSION
     Dosage: 60 MG, DAILY IN MORNING

REACTIONS (1)
  - CONSTIPATION [None]
